FAERS Safety Report 7555027-8 (Version None)
Quarter: 2011Q2

REPORT INFORMATION
  Report Type: 
  Country: None (occurrence: None)
  Receive Date: 20110617
  Receipt Date: 20110615
  Transmission Date: 20111010
  Serious: Yes (Other)
  Sender: FDA-Public Use
  Company Number: AU-PFIZER INC-2011109383

PATIENT
  Age: 57 Year
  Sex: Female
  Weight: 72 kg

DRUGS (3)
  1. CADUET [Concomitant]
     Dosage: 5MG/20MG
  2. VARENICLINE TARTRATE [Suspect]
     Indication: SMOKING CESSATION THERAPY
     Dosage: 1 MG, 2X/DAY
     Route: 048
     Dates: start: 20101210, end: 20110209
  3. IRBESARTAN + HYDROCHLOROTHIAZIDE [Concomitant]
     Dosage: 300MG/25MG

REACTIONS (6)
  - BIPOLAR DISORDER [None]
  - ELEVATED MOOD [None]
  - IRRITABILITY [None]
  - PSYCHOTIC DISORDER [None]
  - MOOD ALTERED [None]
  - SPEECH DISORDER [None]
